FAERS Safety Report 7512107-0 (Version None)
Quarter: 2011Q2

REPORT INFORMATION
  Report Type: 
  Country: None (occurrence: None)
  Receive Date: 20110520
  Receipt Date: 20110504
  Transmission Date: 20111010
  Serious: Yes (Death)
  Sender: FDA-Public Use
  Company Number: GB-DEXPHARM-20110501

PATIENT
  Age: 19 Year
  Sex: Female

DRUGS (1)
  1. OMEPRAZOLE [Suspect]

REACTIONS (4)
  - HEPATIC NECROSIS [None]
  - COAGULOPATHY [None]
  - ACUTE HEPATIC FAILURE [None]
  - BRAIN OEDEMA [None]
